FAERS Safety Report 20306340 (Version 1)
Quarter: 2022Q1

REPORT INFORMATION
  Report Type: Spontaneous
  Country: RU (occurrence: RU)
  Receive Date: 20220106
  Receipt Date: 20220106
  Transmission Date: 20220423
  Serious: Yes (Other)
  Sender: FDA-Public Use
  Company Number: RU-BIOGEN-2021BI01082255

PATIENT
  Age: 10 Year
  Sex: Male
  Weight: 12.2 kg

DRUGS (32)
  1. SPINRAZA [Suspect]
     Active Substance: NUSINERSEN
     Indication: Spinal muscular atrophy
     Dosage: 1ST INJECTION, 5ML
     Route: 037
     Dates: start: 20210101
  2. SPINRAZA [Suspect]
     Active Substance: NUSINERSEN
     Dosage: ANOTHER NEW 1ST INJECTION, 5ML
     Route: 037
     Dates: start: 20210216
  3. SPINRAZA [Suspect]
     Active Substance: NUSINERSEN
     Dosage: SECOND DOSE OF THE DRUG
     Route: 037
  4. SPINRAZA [Suspect]
     Active Substance: NUSINERSEN
     Dosage: THIRD DOSE OF THE DRUG
     Route: 037
     Dates: start: 20210316
  5. SEVOFLURANE [Concomitant]
     Active Substance: SEVOFLURANE
     Indication: General anaesthesia
     Dosage: SERIES 14092020
     Route: 045
     Dates: start: 20210216
  6. SEVOFLURANE [Concomitant]
     Active Substance: SEVOFLURANE
     Route: 045
     Dates: start: 20210302
  7. SEVOFLURANE [Concomitant]
     Active Substance: SEVOFLURANE
     Route: 045
     Dates: start: 20210316
  8. Glycine-Bio [Concomitant]
     Indication: Agitation
     Dosage: 0.3
     Route: 060
     Dates: start: 20201225
  9. Glycine-Bio [Concomitant]
     Dosage: 0.3
     Route: 060
     Dates: start: 20210318
  10. SODIUM CHLORIDE [Concomitant]
     Active Substance: SODIUM CHLORIDE
     Indication: Withdrawal syndrome
     Route: 041
     Dates: start: 20201229
  11. SODIUM CHLORIDE [Concomitant]
     Active Substance: SODIUM CHLORIDE
     Dosage: 0.054
     Route: 045
     Dates: start: 20210209
  12. SODIUM CHLORIDE [Concomitant]
     Active Substance: SODIUM CHLORIDE
     Dosage: 0.054
     Route: 045
     Dates: start: 20210224
  13. SODIUM CHLORIDE [Concomitant]
     Active Substance: SODIUM CHLORIDE
     Dosage: 0.09
     Route: 041
     Dates: start: 20210108
  14. SODIUM CHLORIDE [Concomitant]
     Active Substance: SODIUM CHLORIDE
     Route: 041
     Dates: start: 20210129
  15. SODIUM CHLORIDE [Concomitant]
     Active Substance: SODIUM CHLORIDE
     Route: 041
     Dates: start: 20210204
  16. CEFTRIAXONE [Concomitant]
     Active Substance: CEFTRIAXONE
     Indication: Bronchitis
     Dosage: 1.0
     Route: 041
     Dates: start: 20201229
  17. CEFTRIAXONE [Concomitant]
     Active Substance: CEFTRIAXONE
     Dosage: 1.0
     Route: 041
     Dates: start: 20210108
  18. Chlorhexedin [Concomitant]
     Indication: Nasopharyngitis
     Dosage: 0.003; LOCALLY
     Route: 065
     Dates: start: 20201228
  19. Chlorhexedin [Concomitant]
     Dosage: 0.003; LOCALLY
     Route: 065
     Dates: start: 20210224
  20. METRONIDAZOLE [Concomitant]
     Active Substance: METRONIDAZOLE
     Indication: Giardiasis
     Dosage: 0.25
     Route: 065
     Dates: start: 20210106
  21. METRONIDAZOLE [Concomitant]
     Active Substance: METRONIDAZOLE
     Dosage: 0.25
     Route: 065
  22. Hofitol [Concomitant]
     Indication: Malnutrition
     Route: 048
     Dates: start: 20210119
  23. Hofitol [Concomitant]
     Route: 048
  24. AMBROXOL HYDROCHLORIDE [Concomitant]
     Active Substance: AMBROXOL HYDROCHLORIDE
     Indication: Bronchitis
     Dosage: 0.015
     Route: 045
     Dates: start: 20210104
  25. AMBROXOL HYDROCHLORIDE [Concomitant]
     Active Substance: AMBROXOL HYDROCHLORIDE
     Dosage: 0.015
     Route: 045
     Dates: start: 20210105
  26. ASTMASOL [Concomitant]
     Indication: Product used for unknown indication
     Dosage: 30 DROPS
     Route: 065
     Dates: start: 20210105
  27. ASTMASOL [Concomitant]
     Dosage: 30 DROPS
     Route: 065
     Dates: start: 20210129
  28. ASTMASOL [Concomitant]
     Dosage: 30 DROPS
     Route: 065
     Dates: start: 20210119
  29. ASTMASOL [Concomitant]
     Dosage: 30 DROPS
     Route: 065
     Dates: start: 20210204
  30. AMPICILLIN SODIUM\SULBACTAM SODIUM [Concomitant]
     Active Substance: AMPICILLIN SODIUM\SULBACTAM SODIUM
     Indication: Bronchitis
     Dosage: 1.5
     Route: 041
     Dates: start: 20210129
  31. AMPICILLIN SODIUM\SULBACTAM SODIUM [Concomitant]
     Active Substance: AMPICILLIN SODIUM\SULBACTAM SODIUM
     Dosage: 1.5
     Route: 041
     Dates: start: 20210204
  32. CALCIUM CHLORIDE\MAGNESIUM CHLORIDE\POTASSIUM CHLORIDE\SODIUM ACETATE\ [Concomitant]
     Active Substance: CALCIUM CHLORIDE\MAGNESIUM CHLORIDE\POTASSIUM CHLORIDE\SODIUM ACETATE\SODIUM CHLORIDE
     Indication: Withdrawal syndrome
     Route: 041
     Dates: start: 20210216

REACTIONS (1)
  - Drug ineffective [Recovered/Resolved]

NARRATIVE: CASE EVENT DATE: 20210316
